FAERS Safety Report 9001827 (Version 2)
Quarter: 2013Q1

REPORT INFORMATION
  Report Type: Spontaneous
  Country: DE (occurrence: DE)
  Receive Date: 20130107
  Receipt Date: 20130117
  Transmission Date: 20140127
  Serious: Yes (Hospitalization, Other)
  Sender: FDA-Public Use
  Company Number: DE-AMGEN-DEUSP2013000588

PATIENT
  Age: 69 Year
  Sex: Female

DRUGS (3)
  1. ENBREL [Suspect]
     Indication: RHEUMATOID ARTHRITIS
     Dosage: 50 MG, WEEKLY
     Dates: start: 20120907, end: 20121220
  2. VITAMIN D /00107901/ [Concomitant]
     Dosage: UNK
  3. CORTISONE [Concomitant]
     Dosage: UNK

REACTIONS (5)
  - Hepatitis [Unknown]
  - Cholecystitis [Unknown]
  - Respiratory distress [Unknown]
  - Nasopharyngitis [Unknown]
  - Respiratory tract infection [Unknown]
